FAERS Safety Report 15318913 (Version 1)
Quarter: 2018Q3

REPORT INFORMATION
  Report Type: Spontaneous
  Country: US (occurrence: US)
  Receive Date: 20180820
  Receipt Date: 20180820
  Transmission Date: 20181010
  Serious: Yes (Disabling, Other)
  Sender: FDA-Public Use
  Company Number: None

PATIENT
  Age: 77 Year
  Sex: Male
  Weight: 103.5 kg

DRUGS (12)
  1. LEVIMORE FLEX TOUCH [Concomitant]
  2. TRAZODONE [Concomitant]
     Active Substance: TRAZODONE HYDROCHLORIDE
  3. LATANOPROST. [Concomitant]
     Active Substance: LATANOPROST
  4. FISH OIL [Concomitant]
     Active Substance: FISH OIL
  5. MULTIVITE [Concomitant]
     Active Substance: VITAMINS
  6. ENTERIC ASPIRIN [Concomitant]
     Active Substance: ASPIRIN
  7. BRIMONIDINE [Concomitant]
     Active Substance: BRIMONIDINE TARTRATE
  8. TIMOLOL MALEATE. [Concomitant]
     Active Substance: TIMOLOL MALEATE
  9. PRESER VISION AREDS [Concomitant]
  10. METFORMIN [Suspect]
     Active Substance: METFORMIN HYDROCHLORIDE
     Indication: TYPE 2 DIABETES MELLITUS
     Dosage: 1000 MG AM + PM
     Route: 048
     Dates: start: 20100823, end: 20180731
  11. VITAMIN D3 [Concomitant]
     Active Substance: CHOLECALCIFEROL
  12. BUPROPION. [Concomitant]
     Active Substance: BUPROPION

REACTIONS (8)
  - Back pain [None]
  - Gait disturbance [None]
  - Muscle atrophy [None]
  - Memory impairment [None]
  - Depression [None]
  - Dizziness [None]
  - Visual impairment [None]
  - Balance disorder [None]

NARRATIVE: CASE EVENT DATE: 20170620
